FAERS Safety Report 18550203 (Version 1)
Quarter: 2020Q4

REPORT INFORMATION
  Report Type: Report from Study
  Country: CR (occurrence: CR)
  Receive Date: 20201126
  Receipt Date: 20201126
  Transmission Date: 20210114
  Serious: Yes (Other)
  Sender: FDA-Public Use
  Company Number: NVSC2020CR307786

PATIENT
  Sex: Female

DRUGS (1)
  1. SCAPHO [Suspect]
     Active Substance: SECUKINUMAB
     Indication: PSORIATIC ARTHROPATHY
     Dosage: 150 MG, QW
     Route: 058
     Dates: start: 20201111

REACTIONS (5)
  - Spinal cord herniation [Recovering/Resolving]
  - Spinal osteoarthritis [Recovering/Resolving]
  - Axial spondyloarthritis [Recovering/Resolving]
  - Inflammation [Recovering/Resolving]
  - Pain [Recovering/Resolving]
